FAERS Safety Report 6462028-X (Version None)
Quarter: 2009Q4

REPORT INFORMATION
  Report Type: 
  Country: None (occurrence: None)
  Receive Date: 20091130
  Receipt Date: 20091111
  Transmission Date: 20100525
  Serious: Yes (Other)
  Sender: FDA-Public Use
  Company Number: PHEH2009US04708

PATIENT
  Sex: Female

DRUGS (7)
  1. TASIGNA [Suspect]
     Indication: CHRONIC MYELOID LEUKAEMIA
     Dosage: 400 MG, BID
     Route: 048
     Dates: start: 20050913
  2. TASIGNA [Suspect]
     Dosage: UNK
     Route: 048
  3. SYNTHROID [Suspect]
     Indication: HYPOTHYROIDISM
  4. TAMIFLU [Suspect]
  5. NORETHINDRONE AND ETHINYL ESTRADIOL [Concomitant]
     Indication: CONTRACEPTION
  6. AMBIEN [Concomitant]
     Indication: INSOMNIA
  7. PAXIL [Concomitant]
     Indication: DEPRESSION

REACTIONS (5)
  - BONE PAIN [None]
  - HEPATIC FAILURE [None]
  - HYPERTHYROIDISM [None]
  - JAUNDICE [None]
  - NAUSEA [None]
